FAERS Safety Report 12935147 (Version 2)
Quarter: 2017Q1

REPORT INFORMATION
  Report Type: Spontaneous
  Country: US (occurrence: US)
  Receive Date: 20161114
  Receipt Date: 20170124
  Transmission Date: 20170428
  Serious: No
  Sender: FDA-Public Use
  Company Number: US-AMGEN-USASP2016156462

PATIENT
  Age: 54 Year
  Sex: Female

DRUGS (4)
  1. ENBREL [Suspect]
     Active Substance: ETANERCEPT
     Indication: OSTEOARTHRITIS
  2. METFORMIN [Concomitant]
     Active Substance: METFORMIN HYDROCHLORIDE
     Indication: DIABETES MELLITUS
     Dosage: UNK
  3. ENBREL [Suspect]
     Active Substance: ETANERCEPT
     Indication: RHEUMATOID ARTHRITIS
     Dosage: 50 MG, QWK THURSDAY
     Route: 065
     Dates: start: 201605
  4. GLUCOSE [Concomitant]
     Active Substance: DEXTROSE
     Indication: DIABETES MELLITUS
     Dosage: 4 UNK, UNK

REACTIONS (11)
  - Blood glucose decreased [Unknown]
  - Injection site mass [Recovered/Resolved]
  - Wrong technique in product usage process [Unknown]
  - Off label use [Unknown]
  - Headache [Unknown]
  - Injection site pain [Unknown]
  - Intervertebral disc protrusion [Unknown]
  - Intentional product misuse [Unknown]
  - Drug effect incomplete [Unknown]
  - Drug ineffective for unapproved indication [Unknown]
  - Arthropathy [Unknown]

NARRATIVE: CASE EVENT DATE: 2016
